FAERS Safety Report 12530863 (Version 1)
Quarter: 2016Q3

REPORT INFORMATION
  Report Type: Spontaneous
  Country: US (occurrence: None)
  Receive Date: 20160705
  Receipt Date: 20160705
  Transmission Date: 20161109
  Serious: Yes (Hospitalization)
  Sender: FDA-Public Use
  Company Number: None

PATIENT
  Age: 56 Year
  Sex: Male
  Weight: 27.22 kg

DRUGS (1)
  1. ROCEPHIN GENERIC [Suspect]
     Active Substance: CEFTRIAXONE SODIUM
     Indication: ABSCESS
     Dates: start: 20160624, end: 20160624

REACTIONS (2)
  - Seizure [None]
  - Anal sphincter atony [None]

NARRATIVE: CASE EVENT DATE: 20160624
